FAERS Safety Report 8883962 (Version 1)
Quarter: 2012Q4

REPORT INFORMATION
  Report Type: 
  Country: IT (occurrence: IT)
  Receive Date: 20121102
  Receipt Date: 20121102
  Transmission Date: 20130627
  Serious: Yes (Life-Threatening)
  Sender: FDA-Public Use
  Company Number: IT-ROCHE-1151591

PATIENT
  Age: 47 Year
  Sex: Male

DRUGS (3)
  1. GANCICLOVIR [Suspect]
     Indication: CYTOMEGALOVIRUS INFECTION
     Route: 042
     Dates: start: 20070301, end: 20071108
  2. METHYLPREDNISOLONE [Suspect]
     Indication: IMMUNOSUPPRESSION
     Route: 042
     Dates: start: 20071001, end: 20071108
  3. CYCLOSPORINE [Suspect]
     Indication: IMMUNOSUPPRESSION
     Route: 048
     Dates: start: 20070301, end: 20071108

REACTIONS (9)
  - Toxic epidermal necrolysis [Recovering/Resolving]
  - Hepatitis cholestatic [Recovering/Resolving]
  - Diabetes mellitus [Recovering/Resolving]
  - Dermatitis bullous [Recovering/Resolving]
  - Anaemia [Recovering/Resolving]
  - Blood potassium increased [None]
  - Blood calcium decreased [None]
  - White blood cell count decreased [None]
  - Platelet count decreased [None]
